FAERS Safety Report 16211550 (Version 4)
Quarter: 2020Q4

REPORT INFORMATION
  Report Type: Spontaneous
  Country: US (occurrence: US)
  Receive Date: 20190418
  Receipt Date: 20201229
  Transmission Date: 20210113
  Serious: No
  Sender: FDA-Public Use
  Company Number: PHEH2019US016656

PATIENT
  Sex: Female

DRUGS (1)
  1. VOTRIENT [Suspect]
     Active Substance: PAZOPANIB HYDROCHLORIDE
     Indication: RENAL CANCER
     Dosage: 600 MG, QD
     Route: 048
     Dates: start: 20190321

REACTIONS (6)
  - Protein urine [Unknown]
  - Paraesthesia [Unknown]
  - Hypertension [Unknown]
  - Paraesthesia oral [Unknown]
  - Blood pressure increased [Unknown]
  - Diarrhoea [Unknown]
